FAERS Safety Report 6773995-9 (Version None)
Quarter: 2010Q2

REPORT INFORMATION
  Report Type: 
  Country: None (occurrence: None)
  Receive Date: 20100616
  Receipt Date: 20100616
  Transmission Date: 20101027
  Serious: Yes (Hospitalization)
  Sender: FDA-Public Use
  Company Number: None

PATIENT
  Age: 59 Year
  Sex: Male
  Weight: 120.7 kg

DRUGS (2)
  1. AMITRIPTYLINE HYDROCHLORIDE [Suspect]
     Indication: PAIN
     Dosage: 25 MG HS PO
     Route: 048
     Dates: start: 20100526, end: 20100608
  2. GABAPENTIN [Suspect]
     Indication: PAIN
     Dosage: 300 MG BID PO
     Route: 048
     Dates: start: 20100526, end: 20100608

REACTIONS (1)
  - DIABETIC AUTONOMIC NEUROPATHY [None]
